FAERS Safety Report 8580498-8 (Version None)
Quarter: 2012Q3

REPORT INFORMATION
  Report Type: 
  Country: None (occurrence: None)
  Receive Date: 20120808
  Receipt Date: 20120801
  Transmission Date: 20120928
  Serious: Yes (Hospitalization)
  Sender: FDA-Public Use
  Company Number: US-B.I. PHARMACEUTICALS,INC./RIDGEFIELD-2012-BP-17351BP

PATIENT
  Age: 54 Year
  Sex: Female

DRUGS (2)
  1. PRADAXA [Suspect]
     Indication: CEREBROVASCULAR ACCIDENT PROPHYLAXIS
     Dosage: 300 MG
     Route: 048
     Dates: start: 20120708, end: 20120731
  2. ASPIRIN [Concomitant]
     Dosage: 325 MG
     Route: 048

REACTIONS (7)
  - URTICARIA [None]
  - DYSPHAGIA [None]
  - WRIST FRACTURE [None]
  - FATIGUE [None]
  - HYPERTENSION [None]
  - ALOPECIA [None]
  - PRURITUS [None]
